FAERS Safety Report 6683577-5 (Version None)
Quarter: 2010Q2

REPORT INFORMATION
  Report Type: 
  Country: None (occurrence: None)
  Receive Date: 20100413
  Receipt Date: 20100329
  Transmission Date: 20101027
  Serious: Yes (Other)
  Sender: FDA-Public Use
  Company Number: 2010AL002088

PATIENT
  Sex: Female

DRUGS (3)
  1. SERTRALINE HCL [Suspect]
     Indication: DEPRESSED MOOD
     Dosage: 100 MG;PO
     Route: 048
  2. CLOZARIL [Concomitant]
  3. HYOSCINE [Concomitant]

REACTIONS (5)
  - CONSTIPATION [None]
  - DRUG LEVEL INCREASED [None]
  - ELECTROCARDIOGRAM QT PROLONGED [None]
  - SALIVARY HYPERSECRETION [None]
  - TACHYCARDIA [None]
